FAERS Safety Report 20501930 (Version 1)
Quarter: 2022Q1

REPORT INFORMATION
  Report Type: Spontaneous
  Country: US (occurrence: None)
  Receive Date: 20220219
  Receipt Date: 20220219
  Transmission Date: 20220423
  Serious: Yes (Disabling, Other)
  Sender: FDA-Public Use
  Company Number: None

PATIENT
  Age: 51 Year
  Sex: Female
  Weight: 101.7 kg

DRUGS (15)
  1. MYCOPHENOLIC ACID [Suspect]
     Active Substance: MYCOPHENOLIC ACID
     Indication: Product used for unknown indication
     Dosage: 60 TABLET(S)  TWICE A DAY ORAL?
     Route: 048
     Dates: start: 20220207, end: 20220218
  2. LISINOPRIL [Concomitant]
     Active Substance: LISINOPRIL
  3. ASPIRIN [Concomitant]
     Active Substance: ASPIRIN
  4. FUROSEMIDE [Concomitant]
     Active Substance: FUROSEMIDE
  5. METHOTREXATE [Concomitant]
     Active Substance: METHOTREXATE
  6. HYDROCHLORIQUINE [Concomitant]
  7. SULFASALAZINE [Concomitant]
     Active Substance: SULFASALAZINE
  8. HYDRALAZINE HYDROCHLORIDE [Concomitant]
     Active Substance: HYDRALAZINE HYDROCHLORIDE
  9. CARVEDILOL [Concomitant]
  10. TRAMADOL [Concomitant]
     Active Substance: TRAMADOL
  11. HUMIRA [Concomitant]
     Active Substance: ADALIMUMAB
  12. PREDNISONE [Concomitant]
     Active Substance: PREDNISONE
  13. CALCIUM [Concomitant]
     Active Substance: CALCIUM
  14. ALICE [Concomitant]
  15. BC (ASPIRIN\CAFFEINE) [Concomitant]
     Active Substance: ASPIRIN\CAFFEINE

REACTIONS (12)
  - Rash [None]
  - Diarrhoea [None]
  - Coating in mouth [None]
  - Vomiting [None]
  - Abdominal pain upper [None]
  - Influenza [None]
  - Rhinorrhoea [None]
  - Oropharyngeal pain [None]
  - Muscle disorder [None]
  - Inflammation [None]
  - Gait disturbance [None]
  - Walking aid user [None]

NARRATIVE: CASE EVENT DATE: 20220207
